FAERS Safety Report 9100022 (Version 1)
Quarter: 2013Q1

REPORT INFORMATION
  Report Type: Spontaneous
  Country: US (occurrence: US)
  Receive Date: 20130215
  Receipt Date: 20130215
  Transmission Date: 20140127
  Serious: Yes (Hospitalization)
  Sender: FDA-Public Use
  Company Number: US-ELI_LILLY_AND_COMPANY-US201302001848

PATIENT
  Age: 22 Year
  Sex: Female

DRUGS (7)
  1. HUMALOG 25% LISPRO, 75% NPL [Suspect]
     Indication: TYPE 2 DIABETES MELLITUS
     Dosage: 60 U, EACH MORNING
     Dates: start: 201207, end: 201212
  2. HUMALOG 25% LISPRO, 75% NPL [Suspect]
     Dosage: 64 U, EACH EVENING
     Dates: start: 201207, end: 201212
  3. METFORMIN [Concomitant]
  4. LISINOPRIL [Concomitant]
  5. PRAVASTATIN [Concomitant]
  6. VENTOLIN                                /SCH/ [Concomitant]
  7. ALBUTEROL HFA [Concomitant]

REACTIONS (1)
  - Blood glucose increased [Recovered/Resolved]
